FAERS Safety Report 23923323 (Version 6)
Quarter: 2024Q3

REPORT INFORMATION
  Report Type: Report from Study
  Country: US (occurrence: US)
  Receive Date: 20240531
  Receipt Date: 20240722
  Transmission Date: 20241016
  Serious: No
  Sender: JAZZ
  Company Number: US-JAZZ PHARMACEUTICALS-2024-US-007860

PATIENT
  Sex: Male

DRUGS (3)
  1. SODIUM OXYBATE [Suspect]
     Active Substance: SODIUM OXYBATE
     Indication: Narcolepsy
     Dosage: 2.5 GRAM, BID
     Route: 048
     Dates: start: 20240509
  2. SODIUM OXYBATE [Suspect]
     Active Substance: SODIUM OXYBATE
     Indication: Cataplexy
     Dosage: 3 GRAM, BID
  3. SODIUM OXYBATE [Suspect]
     Active Substance: SODIUM OXYBATE
     Indication: Somnolence
     Dosage: 3.75 GRAM, BID

REACTIONS (12)
  - Pyrexia [Unknown]
  - Crying [Unknown]
  - Abdominal discomfort [Unknown]
  - Feeling abnormal [Unknown]
  - Decreased appetite [Unknown]
  - Vomiting [Unknown]
  - Pollakiuria [Unknown]
  - Feeding disorder [Unknown]
  - Extra dose administered [Unknown]
  - Intentional product use issue [Unknown]
  - Incorrect dose administered [Unknown]
  - Intentional dose omission [Unknown]
